FAERS Safety Report 8443735-6 (Version None)
Quarter: 2012Q2

REPORT INFORMATION
  Report Type: 
  Country: None (occurrence: None)
  Receive Date: 20120618
  Receipt Date: 20120608
  Transmission Date: 20120825
  Serious: Yes (Death, Hospitalization)
  Sender: FDA-Public Use
  Company Number: SE-ELI_LILLY_AND_COMPANY-SE201206002581

PATIENT
  Age: 45 Year
  Sex: Male

DRUGS (13)
  1. METFORMIN HCL [Concomitant]
  2. CISORDINOL                              /DEN/ [Concomitant]
     Dosage: 25MG
     Route: 048
     Dates: start: 20111020, end: 20111025
  3. ZYPREXA [Suspect]
     Dosage: 10MG
     Route: 030
     Dates: start: 20111024, end: 20111025
  4. ZOPICLONE [Concomitant]
  5. PROPAVAN [Concomitant]
  6. APODORM [Concomitant]
  7. LITHIONIT [Concomitant]
  8. LASIX [Concomitant]
  9. ENALAPRIL [Concomitant]
  10. SIMVASTATIN [Concomitant]
  11. JANUVIA [Concomitant]
  12. CISORDINOL ACUTARD [Concomitant]
     Dosage: 150MG
     Route: 030
     Dates: start: 20111025, end: 20111025
  13. FELODIPINE [Concomitant]

REACTIONS (1)
  - ADVERSE DRUG REACTION [None]
